FAERS Safety Report 9909600 (Version 1)
Quarter: 2014Q1

REPORT INFORMATION
  Report Type: Spontaneous
  Country: US (occurrence: US)
  Receive Date: 20140219
  Receipt Date: 20140219
  Transmission Date: 20141002
  Serious: No
  Sender: FDA-Public Use
  Company Number: US-BAYER-2014-024366

PATIENT
  Age: 79 Year
  Sex: Male

DRUGS (5)
  1. STAXYN (FDT/ODT) [Suspect]
     Indication: ERECTILE DYSFUNCTION
     Dosage: UNK UNK, OW
     Route: 048
     Dates: start: 201312, end: 20140212
  2. FINASTERIDE [Concomitant]
  3. FLOMAX (MORNIFLUMATE) [Concomitant]
  4. ASPIRIN [Concomitant]
  5. SPIRIVA [Concomitant]

REACTIONS (1)
  - Nasal congestion [Recovered/Resolved]
